FAERS Safety Report 6721791-0 (Version None)
Quarter: 2010Q2

REPORT INFORMATION
  Report Type: 
  Country: None (occurrence: None)
  Receive Date: 20100512
  Receipt Date: 20100506
  Transmission Date: 20101027
  Serious: Yes (Death, Hospitalization)
  Sender: FDA-Public Use
  Company Number: JP-ROCHE-700562

PATIENT
  Sex: Male
  Weight: 46.7 kg

DRUGS (11)
  1. TOCILIZUMAB [Suspect]
     Indication: PANCREATIC CARCINOMA NON-RESECTABLE
     Dosage: FORM: INJECTION
     Route: 041
     Dates: start: 20100225, end: 20100407
  2. GEMCITABINE HCL [Suspect]
     Indication: PANCREATIC CARCINOMA NON-RESECTABLE
     Route: 041
     Dates: start: 20100224, end: 20100414
  3. OXINORM [Concomitant]
     Dosage: POWDERED MEDICINE, SINGLE USE
     Route: 048
     Dates: start: 20100205, end: 20100503
  4. OXYCONTIN [Concomitant]
     Route: 048
     Dates: start: 20100301, end: 20100429
  5. OXYCONTIN [Concomitant]
     Route: 048
     Dates: start: 20100430, end: 20100503
  6. LOXOPROFEN SODIUM [Concomitant]
     Route: 048
     Dates: start: 20100128, end: 20100503
  7. LANSOPRAZOLE [Concomitant]
     Route: 048
     Dates: start: 20100301, end: 20100503
  8. MAGMITT [Concomitant]
     Route: 048
     Dates: start: 20100325, end: 20100503
  9. LAXOBERON [Concomitant]
     Dosage: DOSE FORM: PERORAL LIQUID PREPARATION, 0.75 SINGLE USE ADMINISTERING OF %10ML
     Route: 048
     Dates: start: 20100305, end: 20100502
  10. SOLANAX [Concomitant]
     Route: 048
     Dates: start: 20100308, end: 20100503
  11. DECADRON [Concomitant]
     Route: 048
     Dates: start: 20100424, end: 20100428

REACTIONS (1)
  - DISSEMINATED INTRAVASCULAR COAGULATION [None]
